FAERS Safety Report 19656276 (Version 1)
Quarter: 2021Q3

REPORT INFORMATION
  Report Type: Spontaneous
  Country: US (occurrence: US)
  Receive Date: 20210804
  Receipt Date: 20210804
  Transmission Date: 20211014
  Serious: Yes (Life-Threatening, Other)
  Sender: FDA-Public Use
  Company Number: US-PFIZER INC-202100940613

PATIENT
  Age: 52 Year
  Sex: Female

DRUGS (1)
  1. MISOPROSTOL. [Suspect]
     Active Substance: MISOPROSTOL
     Indication: UTERINE CERVIX DILATION PROCEDURE
     Dosage: 25 UG
     Route: 048

REACTIONS (4)
  - Cardiac arrest [Recovering/Resolving]
  - Stress cardiomyopathy [Recovering/Resolving]
  - Arteriospasm coronary [Recovered/Resolved]
  - Off label use [Unknown]
